FAERS Safety Report 4678321-7 (Version None)
Quarter: 2005Q2

REPORT INFORMATION
  Report Type: 
  Country: None (occurrence: None)
  Receive Date: 20050531
  Receipt Date: 20050531
  Transmission Date: 20051028
  Serious: Yes (Other)
  Sender: FDA-Public Use
  Company Number: None

PATIENT
  Age: 31 Year
  Sex: Male
  Weight: 70 kg

DRUGS (1)
  1. CIALIS [Suspect]
     Indication: ERECTILE DYSFUNCTION
     Dosage: 20MG    ONCE     ORAL
     Route: 048

REACTIONS (32)
  - ABNORMAL SENSATION IN EYE [None]
  - BALANCE DISORDER [None]
  - COGNITIVE DISORDER [None]
  - CONCUSSION [None]
  - CONFUSIONAL STATE [None]
  - DECREASED ACTIVITY [None]
  - DIARRHOEA [None]
  - DISTURBANCE IN ATTENTION [None]
  - DYSGEUSIA [None]
  - ERYTHEMA [None]
  - EYE DISORDER [None]
  - EYE IRRITATION [None]
  - EYE PAIN [None]
  - EYE SWELLING [None]
  - EYELID OEDEMA [None]
  - FAECES DISCOLOURED [None]
  - FATIGUE [None]
  - FEELING HOT [None]
  - HAEMORRHAGE [None]
  - HEADACHE [None]
  - HOT FLUSH [None]
  - INFLAMMATION [None]
  - INSOMNIA [None]
  - IRIS DISORDER [None]
  - LACRIMATION INCREASED [None]
  - MYALGIA [None]
  - NAUSEA [None]
  - PHOTOSENSITIVITY REACTION [None]
  - PRURITUS [None]
  - SKIN DISCOLOURATION [None]
  - SKIN IRRITATION [None]
  - VISUAL ACUITY REDUCED [None]
